FAERS Safety Report 25568291 (Version 6)
Quarter: 2025Q3

REPORT INFORMATION
  Report Type: Spontaneous
  Country: EU (occurrence: EU)
  Receive Date: 20250716
  Receipt Date: 20250920
  Transmission Date: 20251021
  Serious: Yes (Life-Threatening, Hospitalization, Other)
  Sender: NOVARTIS
  Company Number: EU-002147023-NVSC2025DE112526

PATIENT
  Age: 59 Year
  Sex: Male
  Weight: 89 kg

DRUGS (6)
  1. TASIGNA [Suspect]
     Active Substance: NILOTINIB
     Indication: Chronic myeloid leukaemia
     Route: 048
     Dates: start: 20230801
  2. TASIGNA [Suspect]
     Active Substance: NILOTINIB
     Route: 048
  3. TASIGNA [Suspect]
     Active Substance: NILOTINIB
     Dosage: 400 MG, QD
     Route: 048
     Dates: start: 202412, end: 202503
  4. TASIGNA [Suspect]
     Active Substance: NILOTINIB
     Dosage: 150 MG, QD
     Route: 048
     Dates: start: 202503
  5. TASIGNA [Suspect]
     Active Substance: NILOTINIB
     Dosage: 150 MG, QD
     Route: 048
     Dates: start: 202507, end: 20250808
  6. RAMIPRIL [Concomitant]
     Active Substance: RAMIPRIL
     Indication: Hypertension
     Route: 065

REACTIONS (25)
  - Headache [Recovered/Resolved]
  - Eye pain [Recovering/Resolving]
  - Visual impairment [Recovered/Resolved]
  - Arthralgia [Recovering/Resolving]
  - Drug ineffective [Unknown]
  - Ill-defined disorder [Unknown]
  - Blood pressure decreased [Recovered/Resolved]
  - Therapeutic response unexpected [Unknown]
  - Blood pressure fluctuation [Not Recovered/Not Resolved]
  - Muscle spasms [Recovered/Resolved]
  - Blood pressure increased [Recovered/Resolved]
  - Heart rate increased [Recovered/Resolved]
  - Nausea [Recovered/Resolved]
  - Accidental overdose [Unknown]
  - Dermatitis [Unknown]
  - Heart rate decreased [Recovering/Resolving]
  - Inappropriate schedule of product administration [Unknown]
  - Gingival bleeding [Recovered/Resolved]
  - Headache [Not Recovered/Not Resolved]
  - Skin ulcer [Recovered/Resolved]
  - Peripheral swelling [Recovered/Resolved]
  - Skin exfoliation [Recovered/Resolved]
  - Arthralgia [Recovered/Resolved]
  - Migraine [Recovered/Resolved]
  - Myalgia [Recovered/Resolved]

NARRATIVE: CASE EVENT DATE: 20240101
